FAERS Safety Report 21743638 (Version 1)
Quarter: 2022Q4

REPORT INFORMATION
  Report Type: Spontaneous
  Country: SI (occurrence: SI)
  Receive Date: 20221217
  Receipt Date: 20221217
  Transmission Date: 20230113
  Serious: Yes (Other)
  Sender: FDA-Public Use
  Company Number: SI-002147023-NVSC2022SI288223

PATIENT
  Age: 66 Year
  Sex: Male

DRUGS (9)
  1. ATORVASTATIN [Suspect]
     Active Substance: ATORVASTATIN
     Indication: Product used for unknown indication
     Dosage: 40 MG, QD (IN THE EVENING)
     Route: 065
  2. BISOPROLOL [Suspect]
     Active Substance: BISOPROLOL
     Indication: Product used for unknown indication
     Dosage: 2.5 MG, QD IN THE MORNING
     Route: 065
  3. RIVASTIGMINE [Suspect]
     Active Substance: RIVASTIGMINE
     Indication: Product used for unknown indication
     Dosage: 4.6 MG, Q24H
     Route: 065
  4. RIVASTIGMINE [Suspect]
     Active Substance: RIVASTIGMINE
     Dosage: 9.5 MG, Q24H
     Route: 065
  5. MEMANTINE HYDROCHLORIDE [Suspect]
     Active Substance: MEMANTINE HYDROCHLORIDE
     Indication: Dementia
     Dosage: 20 MG IN THE MORNING
     Route: 065
  6. ASPIRIN [Concomitant]
     Active Substance: ASPIRIN
     Indication: Product used for unknown indication
     Dosage: 100 MG (1X1 AT NOON)
     Route: 065
  7. ALBUTEROL [Concomitant]
     Active Substance: ALBUTEROL
     Indication: Product used for unknown indication
     Dosage: 2 DOSAGE FORM, PRN (2 INHAL ATION S AS  NEED ED
  8. PAROXETINE [Concomitant]
     Active Substance: PAROXETINE
     Indication: Product used for unknown indication
     Dosage: 20 MG (1X1 IN THE EVENING)
     Route: 065
  9. NITRAZEPAM [Concomitant]
     Active Substance: NITRAZEPAM
     Indication: Insomnia
     Dosage: 1 DOSAGE FORM, QD
     Route: 065

REACTIONS (16)
  - Cerebral atrophy [Unknown]
  - Basal ganglia infarction [Unknown]
  - Myocardial infarction [Unknown]
  - Memory impairment [Unknown]
  - Confusional state [Unknown]
  - Agitation [Unknown]
  - Restlessness [Unknown]
  - Pulmonary vascular disorder [Unknown]
  - Weight decreased [Unknown]
  - Asthenia [Unknown]
  - Food refusal [Unknown]
  - Condition aggravated [Unknown]
  - Delusion [Unknown]
  - Psychomotor hyperactivity [Unknown]
  - Nausea [Unknown]
  - Morning sickness [Unknown]

NARRATIVE: CASE EVENT DATE: 20221118
